FAERS Safety Report 8445364-7 (Version None)
Quarter: 2012Q2

REPORT INFORMATION
  Report Type: 
  Country: None (occurrence: None)
  Receive Date: 20120612
  Receipt Date: 20120612
  Transmission Date: 20120825
  Serious: Yes (Hospitalization, Other)
  Sender: FDA-Public Use
  Company Number: None

PATIENT
  Sex: Male

DRUGS (2)
  1. KEPPRA [Suspect]
     Dosage: 350 MG 2 PILLS A DAY PO
     Route: 048
  2. DEPAKOTE [Suspect]
     Indication: CONVULSION
     Dosage: 125 MG 2 PILLS A DAY PO
     Route: 048

REACTIONS (4)
  - AGGRESSION [None]
  - CHILLS [None]
  - CONVULSION [None]
  - ABNORMAL DREAMS [None]
